FAERS Safety Report 5999107-7 (Version None)
Quarter: 2008Q4

REPORT INFORMATION
  Report Type: 
  Country: None (occurrence: None)
  Receive Date: 20081215
  Receipt Date: 20081212
  Transmission Date: 20090506
  Serious: Yes (Other)
  Sender: FDA-Public Use
  Company Number: CN-JNJFOC-20081003252

PATIENT
  Sex: Male

DRUGS (2)
  1. RISPERDAL [Suspect]
     Dosage: 2/3 TABLET, Q.D.
     Route: 048
  2. RISPERDAL [Suspect]
     Indication: SCHIZOPHRENIA
     Route: 048

REACTIONS (1)
  - DIABETES MELLITUS [None]
